FAERS Safety Report 18192738 (Version 1)
Quarter: 2020Q3

REPORT INFORMATION
  Report Type: Spontaneous
  Country: IR (occurrence: IR)
  Receive Date: 20200825
  Receipt Date: 20200825
  Transmission Date: 20201103
  Serious: Yes (Other)
  Sender: FDA-Public Use
  Company Number: IR-GLAXOSMITHKLINE-IR2020GSK163376

PATIENT
  Age: 27 Year
  Sex: Male

DRUGS (6)
  1. VALACYCLOVIR [Suspect]
     Active Substance: VALACYCLOVIR HYDROCHLORIDE
     Dosage: 1 G, BID
     Route: 048
  2. VALACYCLOVIR [Suspect]
     Active Substance: VALACYCLOVIR HYDROCHLORIDE
     Indication: OPHTHALMIC HERPES ZOSTER
     Dosage: 1 G, TID
     Route: 048
  3. METHYLPREDNISOLONE. [Suspect]
     Active Substance: METHYLPREDNISOLONE
     Indication: GRAFT VERSUS HOST DISEASE
     Dosage: UNK 4 TIMES PER DAY
     Route: 061
  4. METHOTREXATE. [Suspect]
     Active Substance: METHOTREXATE
     Indication: GRAFT VERSUS HOST DISEASE
     Dosage: 7.5 MG (WEEKS)
  5. METHYLPREDNISOLONE. [Suspect]
     Active Substance: METHYLPREDNISOLONE
     Dosage: UNK, BID
     Route: 061
  6. PREDNISOLONE. [Suspect]
     Active Substance: PREDNISOLONE
     Indication: GRAFT VERSUS HOST DISEASE
     Dosage: 15 MG, QD
     Route: 048

REACTIONS (11)
  - Ophthalmic herpes zoster [Unknown]
  - Symblepharon [Unknown]
  - Ischaemia [Recovered/Resolved]
  - Corneal epithelium defect [Recovered/Resolved]
  - Rash vesicular [Unknown]
  - Drug ineffective [Unknown]
  - Eye pain [Unknown]
  - Conjunctival hyperaemia [Unknown]
  - Conjunctival disorder [Unknown]
  - Pain [Unknown]
  - Visual impairment [Unknown]
